FAERS Safety Report 7054400-4 (Version None)
Quarter: 2010Q4

REPORT INFORMATION
  Report Type: 
  Country: None (occurrence: None)
  Receive Date: 20101015
  Receipt Date: 20100930
  Transmission Date: 20110411
  Serious: Yes (Hospitalization)
  Sender: FDA-Public Use
  Company Number: MC200900407

PATIENT
  Age: 66 Year
  Sex: Male
  Weight: 80 kg

DRUGS (30)
  1. ANGIOMAX [Suspect]
     Indication: PERCUTANEOUS CORONARY INTERVENTION
     Dosage: 12 ML BOLUS, IV BOLUS, 28 ML, HR, INTRAVENOUS, 4 ML, HR, INTRAVENOUS
     Route: 040
     Dates: start: 20090906, end: 20090906
  2. ANGIOMAX [Suspect]
     Indication: PERCUTANEOUS CORONARY INTERVENTION
     Dosage: 12 ML BOLUS, IV BOLUS, 28 ML, HR, INTRAVENOUS, 4 ML, HR, INTRAVENOUS
     Route: 040
     Dates: start: 20090906, end: 20090906
  3. ANGIOMAX [Suspect]
     Indication: PERCUTANEOUS CORONARY INTERVENTION
     Dosage: 12 ML BOLUS, IV BOLUS, 28 ML, HR, INTRAVENOUS, 4 ML, HR, INTRAVENOUS
     Route: 040
     Dates: start: 20090906, end: 20090906
  4. ASS (ACETYLSALICYLIC ACID) [Suspect]
     Indication: ACUTE MYOCARDIAL INFARCTION
     Dosage: 100 MG, QD, ORAL
     Route: 048
     Dates: start: 20090906
  5. ASS (ACETYLSALICYLIC ACID) [Suspect]
     Indication: CORONARY ARTERY DISEASE
     Dosage: 100 MG, QD, ORAL
     Route: 048
     Dates: start: 20090906
  6. ASS (ACETYLSALICYLIC ACID) [Suspect]
     Indication: STENT PLACEMENT
     Dosage: 100 MG, QD, ORAL
     Route: 048
     Dates: start: 20090906
  7. CLOPIDOGREL [Suspect]
     Indication: ACUTE MYOCARDIAL INFARCTION
     Dosage: 600 MG, SINGLE (LOADING DOSE), 75 MG, QD, ORAL
     Route: 048
     Dates: start: 20090906, end: 20090906
  8. CLOPIDOGREL [Suspect]
     Indication: CORONARY ARTERY DISEASE
     Dosage: 600 MG, SINGLE (LOADING DOSE), 75 MG, QD, ORAL
     Route: 048
     Dates: start: 20090906, end: 20090906
  9. CLOPIDOGREL [Suspect]
     Indication: STENT PLACEMENT
     Dosage: 600 MG, SINGLE (LOADING DOSE), 75 MG, QD, ORAL
     Route: 048
     Dates: start: 20090906, end: 20090906
  10. CLOPIDOGREL [Suspect]
     Indication: ACUTE MYOCARDIAL INFARCTION
     Dosage: 600 MG, SINGLE (LOADING DOSE), 75 MG, QD, ORAL
     Route: 048
     Dates: start: 20090907
  11. CLOPIDOGREL [Suspect]
     Indication: CORONARY ARTERY DISEASE
     Dosage: 600 MG, SINGLE (LOADING DOSE), 75 MG, QD, ORAL
     Route: 048
     Dates: start: 20090907
  12. CLOPIDOGREL [Suspect]
     Indication: STENT PLACEMENT
     Dosage: 600 MG, SINGLE (LOADING DOSE), 75 MG, QD, ORAL
     Route: 048
     Dates: start: 20090907
  13. ENOXAPARIN (ENOXAPARIN) [Suspect]
     Indication: ATRIAL FIBRILLATION
     Dosage: 1.4 MG, QD, SUBCUTANEOUS, 0.4 MG, QD, SUBCUTANEOUS
     Route: 058
     Dates: start: 20090908, end: 20090910
  14. ENOXAPARIN (ENOXAPARIN) [Suspect]
     Indication: THROMBOSIS PROPHYLAXIS
     Dosage: 1.4 MG, QD, SUBCUTANEOUS, 0.4 MG, QD, SUBCUTANEOUS
     Route: 058
     Dates: start: 20090908, end: 20090910
  15. ENOXAPARIN (ENOXAPARIN) [Suspect]
     Indication: ATRIAL FIBRILLATION
     Dosage: 1.4 MG, QD, SUBCUTANEOUS, 0.4 MG, QD, SUBCUTANEOUS
     Route: 058
     Dates: start: 20090910, end: 20090915
  16. ENOXAPARIN (ENOXAPARIN) [Suspect]
     Indication: THROMBOSIS PROPHYLAXIS
     Dosage: 1.4 MG, QD, SUBCUTANEOUS, 0.4 MG, QD, SUBCUTANEOUS
     Route: 058
     Dates: start: 20090910, end: 20090915
  17. RAMIPRIL [Concomitant]
  18. RAMIPRIL [Concomitant]
  19. SIMVASTATIN [Concomitant]
  20. DIGITOXIN INJ [Concomitant]
  21. EBRANTIL (URAPIDIL) [Concomitant]
  22. METOPROLOL TARTRATE [Concomitant]
  23. EPLERENONE (EPLERENONE) [Concomitant]
  24. AMIODARON (AMIODARONE HYDROCHLORIDE) [Concomitant]
  25. BISOPROLOL (BISOPROLOL HEMIFUMARATE) [Concomitant]
  26. MOXONIDIN (MOXONIDINE) [Concomitant]
  27. LERCANIDIPINE [Concomitant]
  28. TORSEMIDE [Concomitant]
  29. MIDAZOLAM HCL [Concomitant]
  30. ETOMIDATE [Concomitant]

REACTIONS (1)
  - VASCULAR PSEUDOANEURYSM [None]
